FAERS Safety Report 8411651 (Version 5)
Quarter: 2014Q1

REPORT INFORMATION
  Report Type: Spontaneous
  Country: US (occurrence: None)
  Receive Date: 20111227
  Receipt Date: 20130107
  Transmission Date: 20141002
  Serious: No
  Sender: FDA-Public Use
  Company Number: PHHY2011US29862

PATIENT
  Age: 56 Year
  Sex: Female

DRUGS (16)
  1. GILENYA (FTY) CAPSULE, 0.5MG [Suspect]
     Indication: MULTIPLE SCLEROSIS
     Route: 048
     Dates: start: 20110407
  2. CALTRATE (CALCIUM CARBONATE) [Concomitant]
  3. XANAX (ALPRAZOLAM) [Concomitant]
  4. LASIX (FUROSEMIDE) [Concomitant]
  5. NEURONTIN (ABAPENTIN) [Concomitant]
  6. TRAMADOL HYDROCHLORIDE (TRAMADOL HYDROCHLORIDE) [Concomitant]
  7. PRAVASTATIN (PRAVASTATIN) [Concomitant]
  8. FENTANYL (FENTANYL) [Concomitant]
  9. STOOL SOFTENER (DOCUSATE SODIUM) [Concomitant]
  10. WELLBUTRIN (BUPROPION HYDROCHLORIDE) [Concomitant]
     Indication: MULTIPLE SCLEROSIS
     Dosage: 0.5 MG, QD, ORAL
     Dates: start: 20110407
  11. OXYBUTYNIN (OXYBUTYNIN) [Concomitant]
  12. FISH OIL (FISH OIL) [Concomitant]
  13. MIRTAZAPINE (MIRTAZAPINE) [Concomitant]
  14. DAILY MULTIVITAMIN (VITAMINE NOS) [Concomitant]
  15. BACLOFEN (BACLOFEN) [Concomitant]
  16. DUROGESIC (FENTANYL) [Concomitant]

REACTIONS (6)
  - Somnolence [None]
  - Hepatic enzyme abnormal [None]
  - White blood cell disorder [None]
  - Inappropriate schedule of drug administration [None]
  - White blood cell count decreased [None]
  - Liver function test abnormal [None]
